FAERS Safety Report 7456919-0 (Version None)
Quarter: 2011Q1

REPORT INFORMATION
  Report Type: 
  Country: None (occurrence: None)
  Receive Date: 20110302
  Receipt Date: 20110112
  Transmission Date: 20110831
  Serious: Yes (Hospitalization)
  Sender: FDA-Public Use
  Company Number: 012521

PATIENT
  Sex: Male
  Weight: 84.5 kg

DRUGS (1)
  1. CIMZIA [Suspect]
     Indication: CROHN'S DISEASE
     Dosage: SUBCUTANEOUS
     Route: 058

REACTIONS (1)
  - CROHN'S DISEASE [None]
